FAERS Safety Report 10749044 (Version 1)
Quarter: 2015Q1

REPORT INFORMATION
  Report Type: Spontaneous
  Country: US (occurrence: None)
  Receive Date: 20150128
  Receipt Date: 20150128
  Transmission Date: 20150721
  Serious: Yes (Other)
  Sender: FDA-Public Use
  Company Number: None

PATIENT
  Age: 64 Year
  Sex: Female
  Weight: 79.38 kg

DRUGS (1)
  1. CLONIDINE. [Suspect]
     Active Substance: CLONIDINE
     Indication: HYPERTENSION
     Dosage: 1 TAB FOUR TIMES DAILY TAKEN BY MOUTH
     Route: 048
     Dates: start: 20150127, end: 20150127

REACTIONS (6)
  - Headache [None]
  - Product quality issue [None]
  - Agitation [None]
  - Eye pain [None]
  - Burning sensation [None]
  - Blood pressure increased [None]

NARRATIVE: CASE EVENT DATE: 20150127
